FAERS Safety Report 17044368 (Version 1)
Quarter: 2019Q4

REPORT INFORMATION
  Report Type: Spontaneous
  Country: US (occurrence: US)
  Receive Date: 20191116
  Receipt Date: 20191116
  Transmission Date: 20200122
  Serious: Yes (Disabling)
  Sender: FDA-Public Use
  Company Number: None

PATIENT
  Age: 64 Year
  Sex: Female
  Weight: 91.8 kg

DRUGS (1)
  1. LEVAQUIN [Suspect]
     Active Substance: LEVOFLOXACIN
     Indication: PNEUMONIA
     Dosage: ?          QUANTITY:1 TABLET(S);?
     Route: 048
     Dates: start: 20191010, end: 20191015

REACTIONS (9)
  - Asthenia [None]
  - Pain in extremity [None]
  - Chills [None]
  - Arthritis [None]
  - Peripheral swelling [None]
  - Burning sensation [None]
  - Arthralgia [None]
  - Musculoskeletal pain [None]
  - Hypokinesia [None]

NARRATIVE: CASE EVENT DATE: 20191012
